FAERS Safety Report 5505767-7 (Version None)
Quarter: 2007Q4

REPORT INFORMATION
  Report Type: 
  Country: None (occurrence: None)
  Receive Date: 20071102
  Receipt Date: 20071025
  Transmission Date: 20080405
  Serious: Yes (Hospitalization)
  Sender: FDA-Public Use
  Company Number: ZA-ABBOTT-07P-143-0422064-00

PATIENT
  Sex: Female

DRUGS (5)
  1. CLACEE [Suspect]
     Indication: DRUG USE FOR UNKNOWN INDICATION
  2. DIFFLAM-C [Concomitant]
     Indication: DRUG USE FOR UNKNOWN INDICATION
  3. ALTROXIN [Concomitant]
     Indication: DRUG USE FOR UNKNOWN INDICATION
  4. UNIMAX [Concomitant]
     Indication: DRUG USE FOR UNKNOWN INDICATION
  5. BRONKESE-CO [Concomitant]
     Indication: DRUG USE FOR UNKNOWN INDICATION

REACTIONS (2)
  - CHEST DISCOMFORT [None]
  - DYSPNOEA [None]
